FAERS Safety Report 7504449-X (Version None)
Quarter: 2011Q2

REPORT INFORMATION
  Report Type: 
  Country: None (occurrence: None)
  Receive Date: 20110525
  Receipt Date: 20110512
  Transmission Date: 20111010
  Serious: Yes (Disabling)
  Sender: FDA-Public Use
  Company Number: JP-GENENTECH-306037

PATIENT
  Age: 72 Year
  Sex: Male

DRUGS (4)
  1. LEVOFLOXACIN [Concomitant]
     Indication: PRODUCT USED FOR UNKNOWN INDICATION
  2. LANSOPRAZOLE [Concomitant]
     Indication: GASTRIC ULCER
  3. LUCENTIS [Suspect]
     Indication: AGE-RELATED MACULAR DEGENERATION
     Dosage: 0.05 ML, UNK
     Route: 031
     Dates: start: 20100607, end: 20100907
  4. VISUDYNE [Concomitant]
     Indication: PRODUCT USED FOR UNKNOWN INDICATION
     Dosage: UNK
     Dates: start: 20100614

REACTIONS (1)
  - CEREBRAL INFARCTION [None]
